FAERS Safety Report 9275159 (Version 1)
Quarter: 2013Q2

REPORT INFORMATION
  Report Type: Spontaneous
  Country: US (occurrence: US)
  Receive Date: 20130507
  Receipt Date: 20130507
  Transmission Date: 20140414
  Serious: No
  Sender: FDA-Public Use
  Company Number: US-JNJFOC-20130416891

PATIENT
  Age: 38 Year
  Sex: Female
  Weight: 76.2 kg

DRUGS (2)
  1. DURAGESIC [Suspect]
     Indication: MYELITIS TRANSVERSE
     Dosage: NDC NUMBER 50458-093-05
     Route: 062
     Dates: start: 20130418
  2. BACLOFEN [Concomitant]
     Indication: MYELITIS TRANSVERSE
     Route: 048
     Dates: start: 2011

REACTIONS (5)
  - Wrong technique in drug usage process [Unknown]
  - Drug ineffective [Not Recovered/Not Resolved]
  - Wrong technique in drug usage process [Recovered/Resolved]
  - Product quality issue [Unknown]
  - Product quality issue [Unknown]
